FAERS Safety Report 10009379 (Version 1)
Quarter: 2014Q1

REPORT INFORMATION
  Report Type: Spontaneous
  Country: US (occurrence: US)
  Receive Date: 20140313
  Receipt Date: 20140313
  Transmission Date: 20141002
  Serious: Yes (Hospitalization)
  Sender: FDA-Public Use
  Company Number: CHPA2014US003654

PATIENT
  Age: 79 Year
  Sex: Male

DRUGS (1)
  1. VOLTAREN GEL [Suspect]
     Indication: ARTHRITIS
     Dosage: UNK, BID
     Route: 061

REACTIONS (4)
  - Hip fracture [Unknown]
  - Therapeutic response unexpected [Unknown]
  - Underdose [Unknown]
  - Drug administered at inappropriate site [Unknown]
